FAERS Safety Report 9820676 (Version 3)
Quarter: 2014Q2

REPORT INFORMATION
  Report Type: Spontaneous
  Country: DE (occurrence: DE)
  Receive Date: 20140116
  Receipt Date: 20140415
  Transmission Date: 20141212
  Serious: Yes (Other)
  Sender: FDA-Public Use
  Company Number: DE-JNJFOC-20140103404

PATIENT
  Age: 62 Year
  Sex: Male

DRUGS (1)
  1. STELARA [Suspect]
     Indication: PRODUCT USED FOR UNKNOWN INDICATION
     Route: 058
     Dates: end: 201312

REACTIONS (3)
  - Hypokinesia [Recovering/Resolving]
  - Cognitive disorder [Recovering/Resolving]
  - Infection [Recovering/Resolving]
